FAERS Safety Report 4380055-3 (Version None)
Quarter: 2004Q2

REPORT INFORMATION
  Report Type: 
  Country: None (occurrence: None)
  Receive Date: 20040614
  Receipt Date: 20040319
  Transmission Date: 20050107
  Serious: No
  Sender: FDA-Public Use
  Company Number: M03-341-045

PATIENT
  Age: 70 Year
  Sex: Female

DRUGS (2)
  1. VELCADE [Suspect]
     Indication: MULTIPLE MYELOMA
     Dosage: 1.3 MG/M2 BIW: INTRAVENOUS BOLUS
     Route: 040
     Dates: start: 20030610, end: 20030714
  2. AREDIA [Concomitant]

REACTIONS (2)
  - OEDEMA [None]
  - WEIGHT INCREASED [None]
